FAERS Safety Report 11779980 (Version 4)
Quarter: 2016Q2

REPORT INFORMATION
  Report Type: Report from Study
  Country: CO (occurrence: CO)
  Receive Date: 20151125
  Receipt Date: 20160426
  Transmission Date: 20160815
  Serious: Yes (Other)
  Sender: FDA-Public Use
  Company Number: PHHY2015CO078649

PATIENT
  Sex: Female
  Weight: 64 kg

DRUGS (4)
  1. SANDOSTATIN LAR DEPOT [Suspect]
     Active Substance: OCTREOTIDE ACETATE
     Indication: NEUROENDOCRINE TUMOUR
     Dosage: 30 MG, QMO
     Route: 030
     Dates: start: 20150430, end: 20160325
  2. ROBAXIN [Concomitant]
     Active Substance: METHOCARBAMOL
     Indication: PRODUCT USED FOR UNKNOWN INDICATION
     Dosage: 500 MG, UNK
     Route: 048
  3. DOLEX [Concomitant]
     Active Substance: IBUPROFEN
     Indication: PAIN
     Route: 065
  4. SANDOSTATIN LAR DEPOT [Suspect]
     Active Substance: OCTREOTIDE ACETATE
     Indication: ACROMEGALY

REACTIONS (13)
  - Accident [Unknown]
  - Nasal congestion [Unknown]
  - Dyspnoea [Unknown]
  - Limb deformity [Unknown]
  - General physical health deterioration [Unknown]
  - Abasia [Unknown]
  - Nasal septum deviation [Unknown]
  - Muscular weakness [Unknown]
  - Nasal adhesions [Unknown]
  - Movement disorder [Not Recovered/Not Resolved]
  - Palpitations [Unknown]
  - Arthralgia [Unknown]
  - Headache [Unknown]
